FAERS Safety Report 9238578 (Version 1)
Quarter: 2013Q2

REPORT INFORMATION
  Report Type: Spontaneous
  Country: IE (occurrence: IE)
  Receive Date: 20130418
  Receipt Date: 20130418
  Transmission Date: 20140414
  Serious: Yes (Other)
  Sender: FDA-Public Use
  Company Number: IE-ABBOTT-13P-229-1042302-00

PATIENT
  Sex: Male

DRUGS (4)
  1. HUMIRA [Suspect]
     Indication: PSORIATIC ARTHROPATHY
     Route: 058
  2. LONART [Concomitant]
     Indication: PRODUCT USED FOR UNKNOWN INDICATION
     Dosage: 20MG/120MG
  3. PRIMAQUINE [Concomitant]
     Indication: PRODUCT USED FOR UNKNOWN INDICATION
  4. MALARONE [Concomitant]
     Indication: MALARIA PROPHYLAXIS

REACTIONS (2)
  - Malaria [Unknown]
  - Malaise [Unknown]
